FAERS Safety Report 7950534-8 (Version None)
Quarter: 2011Q4

REPORT INFORMATION
  Report Type: 
  Country: None (occurrence: None)
  Receive Date: 20111130
  Receipt Date: 20111121
  Transmission Date: 20120403
  Serious: Yes (Other)
  Sender: FDA-Public Use
  Company Number: PHHY2011US102219

PATIENT
  Age: 62 Year
  Sex: Female

DRUGS (3)
  1. ACETAMINOPHEN AND HYDROCODONE BITARTRATE [Interacting]
     Indication: MYALGIA
     Dosage: 0-2 DF, DAILY
  2. TACROLIMUS [Suspect]
     Dosage: UNK
  3. ACETAMINOPHEN AND HYDROCODONE BITARTRATE [Interacting]
     Dosage: 6-8 DF, UNK
     Route: 048

REACTIONS (6)
  - SOMNOLENCE [None]
  - MENTAL STATUS CHANGES [None]
  - LEUKOENCEPHALOPATHY [None]
  - PYREXIA [None]
  - DRUG INTERACTION [None]
  - BRAIN OEDEMA [None]
